FAERS Safety Report 4819549-2 (Version None)
Quarter: 2005Q4

REPORT INFORMATION
  Report Type: 
  Country: None (occurrence: None)
  Receive Date: 20051102
  Receipt Date: 20051102
  Transmission Date: 20060501
  Serious: Yes (Hospitalization)
  Sender: FDA-Public Use
  Company Number: None

PATIENT
  Age: 62 Year
  Sex: Male

DRUGS (1)
  1. PHENYTOIN [Suspect]
     Indication: CONVULSION
     Dosage: 300 MG QPM
     Dates: start: 20050808, end: 20050822

REACTIONS (3)
  - COORDINATION ABNORMAL [None]
  - DRUG TOXICITY [None]
  - FALL [None]
